FAERS Safety Report 26011017 (Version 1)
Quarter: 2025Q4

REPORT INFORMATION
  Report Type: Spontaneous
  Country: EU (occurrence: EU)
  Receive Date: 20251107
  Receipt Date: 20251107
  Transmission Date: 20260118
  Serious: Yes (Other)
  Sender: JOHNSON AND JOHNSON
  Company Number: EU-AUROBINDO-AUR-APL-2025-055041

PATIENT
  Age: 46 Year
  Sex: Male

DRUGS (1)
  1. TOPIRAMATE [Suspect]
     Active Substance: TOPIRAMATE
     Indication: Affective disorder
     Dosage: UNK
     Route: 048

REACTIONS (2)
  - Angle closure glaucoma [Unknown]
  - Off label use [Unknown]
